FAERS Safety Report 16482982 (Version 3)
Quarter: 2023Q4

REPORT INFORMATION
  Report Type: Spontaneous
  Country: US (occurrence: US)
  Receive Date: 20190627
  Receipt Date: 20231113
  Transmission Date: 20240109
  Serious: No
  Sender: FDA-Public Use
  Company Number: US-BEH-2019103383

PATIENT
  Age: 46 Year
  Sex: Male
  Weight: 90.703 kg

DRUGS (1)
  1. HAEGARDA [Suspect]
     Active Substance: HUMAN C1-ESTERASE INHIBITOR
     Indication: Hereditary angioedema
     Dosage: UNK
     Route: 065

REACTIONS (4)
  - Device issue [Unknown]
  - Device malfunction [Unknown]
  - Incorrect dose administered [Unknown]
  - No adverse event [Unknown]
